FAERS Safety Report 7557570-4 (Version None)
Quarter: 2011Q2

REPORT INFORMATION
  Report Type: 
  Country: None (occurrence: None)
  Receive Date: 20110620
  Receipt Date: 20110606
  Transmission Date: 20111010
  Serious: Yes (Death, Hospitalization)
  Sender: FDA-Public Use
  Company Number: FR-ACTELION-A-CH2010-33567

PATIENT
  Age: 28 Year
  Sex: Male

DRUGS (1)
  1. TRACLEER [Suspect]
     Indication: PULMONARY ARTERIAL HYPERTENSION
     Dosage: 125 MG, BID
     Route: 048
     Dates: start: 20081101, end: 20100101

REACTIONS (19)
  - CARDIAC ELECTROPHYSIOLOGIC STUDY [None]
  - CARDIAC PACEMAKER INSERTION [None]
  - ALANINE AMINOTRANSFERASE INCREASED [None]
  - CARDIAC FAILURE [None]
  - CARDIO-RESPIRATORY ARREST [None]
  - HYPOTENSION [None]
  - DYSPNOEA [None]
  - LOSS OF CONSCIOUSNESS [None]
  - ATRIOVENTRICULAR BLOCK SECOND DEGREE [None]
  - ATRIOVENTRICULAR BLOCK COMPLETE [None]
  - ENDOTRACHEAL INTUBATION [None]
  - SINOATRIAL BLOCK [None]
  - ARRHYTHMIA [None]
  - ASPARTATE AMINOTRANSFERASE INCREASED [None]
  - CYANOSIS [None]
  - MALAISE [None]
  - LIVER FUNCTION TEST ABNORMAL [None]
  - VOMITING [None]
  - GASTROENTERITIS [None]
